FAERS Safety Report 9132392 (Version 1)
Quarter: 2013Q1

REPORT INFORMATION
  Report Type: Spontaneous
  Country: None (occurrence: US)
  Receive Date: 20130120
  Receipt Date: 20130120
  Transmission Date: 20140127
  Serious: No
  Sender: FDA-Public Use
  Company Number: US-ALLERGAN-1212740US

PATIENT
  Age: 53 Year
  Sex: Female
  Weight: 74.83 kg

DRUGS (3)
  1. BOTOX? [Suspect]
     Indication: MIGRAINE
     Dosage: UNK, SINGLE
     Route: 030
     Dates: start: 20120731, end: 20120731
  2. BOTOX? [Suspect]
     Dosage: UNK, SINGLE
     Route: 030
     Dates: start: 20120418, end: 20120418
  3. ZOMIG [Concomitant]
     Indication: MIGRAINE
     Dosage: 5 MG, PRN

REACTIONS (5)
  - Panic attack [Unknown]
  - Therapeutic response decreased [Unknown]
  - Therapeutic response decreased [Unknown]
  - Product quality issue [Unknown]
  - Incorrect dose administered [Unknown]
